FAERS Safety Report 8029288-5 (Version None)
Quarter: 2012Q1

REPORT INFORMATION
  Report Type: 
  Country: None (occurrence: None)
  Receive Date: 20120106
  Receipt Date: 20120104
  Transmission Date: 20120608
  Serious: Yes (Other)
  Sender: FDA-Public Use
  Company Number: US-ABBOTT-12P-163-0889106-00

PATIENT
  Sex: Male
  Weight: 95.34 kg

DRUGS (12)
  1. METHOTREXATE [Concomitant]
     Indication: RHEUMATOID ARTHRITIS
  2. FOLIC ACID [Concomitant]
     Indication: STOMATITIS
  3. GLUCOPHAGE [Concomitant]
     Indication: DIABETES MELLITUS
  4. PREDNISONE TAB [Concomitant]
     Indication: RHEUMATOID ARTHRITIS
  5. FLOMAX [Concomitant]
     Indication: DYSURIA
  6. FOLIC ACID [Concomitant]
     Indication: PROPHYLAXIS
  7. LEVOTHYROXINE SODIUM [Concomitant]
     Indication: HYPOTHYROIDISM
  8. ALTACE [Concomitant]
     Indication: HYPERTENSION
  9. ALTACE [Concomitant]
     Indication: PROPHYLAXIS
  10. HUMIRA [Suspect]
     Dates: start: 20110801
  11. ZOCOR [Concomitant]
     Indication: BLOOD CHOLESTEROL INCREASED
  12. HUMIRA [Suspect]
     Indication: RHEUMATOID ARTHRITIS
     Dates: start: 20090101, end: 20101001

REACTIONS (3)
  - ARTHRALGIA [None]
  - PAIN IN EXTREMITY [None]
  - DEVICE MATERIAL ISSUE [None]
